FAERS Safety Report 5298119-9 (Version None)
Quarter: 2007Q2

REPORT INFORMATION
  Report Type: 
  Country: None (occurrence: None)
  Receive Date: 20070416
  Receipt Date: 20070404
  Transmission Date: 20071010
  Serious: Yes (Other)
  Sender: FDA-Public Use
  Company Number: US-ROCHE-491479

PATIENT
  Sex: Male

DRUGS (5)
  1. PEGASYS [Suspect]
     Route: 065
     Dates: start: 20070108
  2. RIBAVIRIN [Suspect]
     Route: 065
     Dates: start: 20070108
  3. PROCRIT [Concomitant]
     Route: 065
     Dates: start: 20070328
  4. LITHIUM CARBONATE [Concomitant]
     Dosage: INCREASED DUE TO EVENT OF MANIC EPISODES. FORM REPORTED AS ^PILL^
     Route: 065
  5. TRAZODONE HCL [Concomitant]
     Dosage: INCREASED IN RESPONCE TO EVENT OF MANIC EPISODES. FORM REPORTED AS ^PILL^.
     Route: 065

REACTIONS (5)
  - ANAEMIA [None]
  - DECREASED APPETITE [None]
  - MANIA [None]
  - TIC [None]
  - WEIGHT DECREASED [None]
